FAERS Safety Report 20399386 (Version 2)
Quarter: 2022Q1

REPORT INFORMATION
  Report Type: Spontaneous
  Country: US (occurrence: US)
  Receive Date: 20220131
  Receipt Date: 20220201
  Transmission Date: 20220424
  Serious: No
  Sender: FDA-Public Use
  Company Number: US-ABBVIE-21K-163-3933374-00

PATIENT
  Sex: Male

DRUGS (1)
  1. HUMIRA [Suspect]
     Active Substance: ADALIMUMAB
     Indication: Colitis ulcerative
     Dosage: APPROXIMATELY 2 YEARS AGO STARTED
     Route: 058
     Dates: start: 2019

REACTIONS (6)
  - Rhinorrhoea [Not Recovered/Not Resolved]
  - Rhinorrhoea [Recovered/Resolved]
  - Eye pruritus [Not Recovered/Not Resolved]
  - Eye pruritus [Recovered/Resolved]
  - Seasonal allergy [Not Recovered/Not Resolved]
  - Seasonal allergy [Recovered/Resolved]

NARRATIVE: CASE EVENT DATE: 20200101
